FAERS Safety Report 8743657 (Version 3)
Quarter: 2017Q4

REPORT INFORMATION
  Report Type: Spontaneous
  Country: FR (occurrence: FR)
  Receive Date: 20120824
  Receipt Date: 20171205
  Transmission Date: 20180321
  Serious: Yes (Life-Threatening)
  Sender: FDA-Public Use
  Company Number: FR-TEVA-354111ISR

PATIENT
  Age: 53 Year
  Sex: Male

DRUGS (4)
  1. DUOPLAVIN [Concomitant]
     Active Substance: ASPIRIN\CLOPIDOGREL
     Dosage: 1 TABLET DAILY;
  2. ATORVASTATINE ISOMED 10 MG [Suspect]
     Active Substance: ATORVASTATIN
     Indication: ISCHAEMIC CARDIOMYOPATHY
     Dosage: 10 MILLIGRAM DAILY;
     Route: 048
     Dates: start: 20120601, end: 20120630
  3. MOLSIDOMINE [Concomitant]
     Active Substance: MOLSIDOMINE
     Dosage: 4 MILLIGRAM DAILY;
  4. NEBIVOLOL. [Concomitant]
     Active Substance: NEBIVOLOL
     Dosage: 5 MILLIGRAM DAILY;

REACTIONS (2)
  - Product substitution issue [None]
  - Pancreatitis necrotising [Recovered/Resolved with Sequelae]

NARRATIVE: CASE EVENT DATE: 20120702
